FAERS Safety Report 14777030 (Version 1)
Quarter: 2018Q2

REPORT INFORMATION
  Report Type: Spontaneous
  Country: US (occurrence: US)
  Receive Date: 20180419
  Receipt Date: 20180419
  Transmission Date: 20180711
  Serious: Yes (Hospitalization, Other)
  Sender: FDA-Public Use
  Company Number: US-ZYDUS-019771

PATIENT
  Age: 49 Year
  Sex: Female

DRUGS (37)
  1. SERTRALINE [Suspect]
     Active Substance: SERTRALINE HYDROCHLORIDE
     Indication: SCHIZOAFFECTIVE DISORDER BIPOLAR TYPE
     Route: 065
  2. CHLORPROMAZINE/CHLORPROMAZINE EMBONATE/CHLORPROMAZINE HYDROCHLORIDE/CHLORPROMAZINE MALEATE [Suspect]
     Active Substance: CHLORPROMAZINE
     Indication: PRODUCT USED FOR UNKNOWN INDICATION
     Route: 065
  3. VALPROIC ACID. [Concomitant]
     Active Substance: VALPROIC ACID
     Indication: SCHIZOAFFECTIVE DISORDER BIPOLAR TYPE
     Dosage: 500 MG IN THE MORNING AND 1000 MG NIGHTLY
     Route: 065
  4. LORAZEPAM. [Concomitant]
     Active Substance: LORAZEPAM
     Indication: AGITATION
     Route: 065
  5. CLOZAPINE. [Suspect]
     Active Substance: CLOZAPINE
     Indication: SCHIZOAFFECTIVE DISORDER BIPOLAR TYPE
     Route: 065
  6. RISPERIDONE. [Suspect]
     Active Substance: RISPERIDONE
     Indication: SCHIZOAFFECTIVE DISORDER BIPOLAR TYPE
     Route: 065
  7. LORAZEPAM. [Concomitant]
     Active Substance: LORAZEPAM
     Indication: AGGRESSION
     Dosage: ON DAY 2 OF ADMISSION, 4MG OF INTRAVENOUS LORAZEPAM
     Route: 042
  8. VALPROIC ACID. [Concomitant]
     Active Substance: VALPROIC ACID
     Indication: SCHIZOAFFECTIVE DISORDER BIPOLAR TYPE
     Dosage: EXTEND RELEASE 500 MG BID
     Route: 065
  9. LORAZEPAM. [Concomitant]
     Active Substance: LORAZEPAM
     Indication: AGGRESSION
     Dosage: ON DAY 9 OF ADMISSION,  PRN DOSES OF 6 MG OF INTRAVENOUS LORAZEPAM
     Route: 042
  10. LORAZEPAM. [Concomitant]
     Active Substance: LORAZEPAM
     Indication: AGGRESSION
     Dosage: ON DAY 8 OF ADMISSION, 5 MG OF INTRAVENOUS LORAZEPAM
     Route: 042
  11. FLUPHENAZINE [Suspect]
     Active Substance: FLUPHENAZINE
     Indication: PRODUCT USED FOR UNKNOWN INDICATION
     Route: 065
  12. BENZATROPINE [Suspect]
     Active Substance: BENZTROPINE
     Indication: SCHIZOAFFECTIVE DISORDER BIPOLAR TYPE
     Route: 065
  13. RISPERIDONE. [Suspect]
     Active Substance: RISPERIDONE
     Indication: SCHIZOAFFECTIVE DISORDER BIPOLAR TYPE
     Route: 065
  14. CLOZAPINE. [Suspect]
     Active Substance: CLOZAPINE
     Indication: SCHIZOAFFECTIVE DISORDER BIPOLAR TYPE
     Route: 065
  15. CHLORPROMAZINE/CHLORPROMAZINE EMBONATE/CHLORPROMAZINE HYDROCHLORIDE/CHLORPROMAZINE MALEATE [Suspect]
     Active Substance: CHLORPROMAZINE
     Indication: PRODUCT USED FOR UNKNOWN INDICATION
     Route: 065
  16. VALPROIC ACID. [Concomitant]
     Active Substance: VALPROIC ACID
     Indication: SCHIZOAFFECTIVE DISORDER BIPOLAR TYPE
     Dosage: 500 MG IN THE MORNING AND 1000 MG NIGHTLY
     Route: 065
  17. BENZATROPINE [Suspect]
     Active Substance: BENZTROPINE
     Indication: SCHIZOAFFECTIVE DISORDER BIPOLAR TYPE
     Route: 065
  18. FLUPHENAZINE [Suspect]
     Active Substance: FLUPHENAZINE
     Indication: PRODUCT USED FOR UNKNOWN INDICATION
     Route: 065
  19. CLOZAPINE. [Suspect]
     Active Substance: CLOZAPINE
     Indication: SCHIZOAFFECTIVE DISORDER BIPOLAR TYPE
     Route: 065
  20. HALOPERIDOL. [Suspect]
     Active Substance: HALOPERIDOL
     Indication: AGGRESSION
     Route: 042
  21. HALOPERIDOL. [Suspect]
     Active Substance: HALOPERIDOL
     Indication: SCHIZOAFFECTIVE DISORDER BIPOLAR TYPE
     Dosage: HALOPERIDOL 2.5 MG DAILY, 2.5 MG IN THE AFTERNOON AND 5 MG NIGHTLY
     Route: 065
  22. CLOZAPINE. [Suspect]
     Active Substance: CLOZAPINE
     Indication: SCHIZOAFFECTIVE DISORDER BIPOLAR TYPE
     Route: 065
  23. VALPROIC ACID. [Concomitant]
     Active Substance: VALPROIC ACID
     Indication: SCHIZOAFFECTIVE DISORDER BIPOLAR TYPE
     Route: 065
  24. CLOZAPINE. [Suspect]
     Active Substance: CLOZAPINE
     Indication: SCHIZOAFFECTIVE DISORDER BIPOLAR TYPE
     Route: 065
  25. CLOZAPINE. [Suspect]
     Active Substance: CLOZAPINE
     Indication: SCHIZOAFFECTIVE DISORDER BIPOLAR TYPE
     Route: 065
  26. OLANZAPINE. [Suspect]
     Active Substance: OLANZAPINE
     Indication: SCHIZOAFFECTIVE DISORDER BIPOLAR TYPE
     Route: 065
  27. OLANZAPINE. [Suspect]
     Active Substance: OLANZAPINE
     Indication: AGITATION
     Route: 030
  28. RISPERIDONE. [Suspect]
     Active Substance: RISPERIDONE
     Indication: SCHIZOAFFECTIVE DISORDER BIPOLAR TYPE
     Route: 030
  29. DIPHENHYDRAMINE. [Concomitant]
     Active Substance: DIPHENHYDRAMINE
     Indication: AGITATION
     Route: 065
  30. HALOPERIDOL. [Suspect]
     Active Substance: HALOPERIDOL
     Indication: SCHIZOAFFECTIVE DISORDER BIPOLAR TYPE
     Route: 065
  31. HALOPERIDOL. [Suspect]
     Active Substance: HALOPERIDOL
     Indication: AGITATION
     Route: 042
  32. HALOPERIDOL. [Suspect]
     Active Substance: HALOPERIDOL
     Indication: AGITATION
     Route: 042
  33. CLOZAPINE. [Suspect]
     Active Substance: CLOZAPINE
     Indication: SCHIZOAFFECTIVE DISORDER BIPOLAR TYPE
     Route: 065
  34. RISPERIDONE. [Suspect]
     Active Substance: RISPERIDONE
     Indication: SCHIZOAFFECTIVE DISORDER BIPOLAR TYPE
     Route: 065
  35. CLOZAPINE. [Suspect]
     Active Substance: CLOZAPINE
     Indication: SCHIZOAFFECTIVE DISORDER BIPOLAR TYPE
     Route: 065
  36. LORAZEPAM. [Concomitant]
     Active Substance: LORAZEPAM
     Indication: AGGRESSION
     Dosage: ON DAY 3 OF ADMISSION, 3 MG OF INTRAVENOUS LORAZEPAM
     Route: 042
  37. DIPHENHYDRAMINE. [Concomitant]
     Active Substance: DIPHENHYDRAMINE
     Indication: AGGRESSION
     Route: 042

REACTIONS (11)
  - Tachypnoea [Unknown]
  - Sepsis [Unknown]
  - Hypotension [Unknown]
  - Torsade de pointes [Unknown]
  - Pneumonia aspiration [Unknown]
  - Cough [Unknown]
  - Pyrexia [Unknown]
  - Atrial fibrillation [Unknown]
  - Cardiac arrest [Unknown]
  - Loss of consciousness [Unknown]
  - Electrocardiogram QT prolonged [Unknown]
